FAERS Safety Report 5374733-7 (Version None)
Quarter: 2007Q2

REPORT INFORMATION
  Report Type: 
  Country: None (occurrence: None)
  Receive Date: 20070625
  Receipt Date: 20070306
  Transmission Date: 20071010
  Serious: Yes (Hospitalization)
  Sender: FDA-Public Use
  Company Number: 06P-163-0335051-00

PATIENT
  Age: 49 Year
  Sex: Female

DRUGS (19)
  1. HUMIRA [Suspect]
     Indication: RHEUMATOID ARTHRITIS
     Dosage: 40 MG, 1 IN 2 WK; SUBCUTANEOUS
     Route: 058
     Dates: start: 20070120
  2. GAPAPENTIN [Concomitant]
  3. PROMETHAZINE HCL [Concomitant]
  4. MEPERIDINE HCL [Concomitant]
  5. ZELNORM [Concomitant]
  6. TRAZODONE HCL [Concomitant]
  7. TRIAMTERENE AND HYDROCHLOROTHIAZIDE [Concomitant]
  8. PAROXETINE [Concomitant]
  9. PREDNISONE [Concomitant]
  10. FOLIC ACID [Concomitant]
  11. ALPRAZOLAM [Concomitant]
  12. ACETAMINOPHEN AND HYDROCODONE BITARTRATE [Concomitant]
  13. METOPROLOL SUCCINATE [Concomitant]
  14. METHOTREXATE SODIUM [Concomitant]
  15. ATORVASTATIN CALCIUM [Concomitant]
  16. ALENDRONATE SODIUM [Concomitant]
  17. TRAZODONE HCL [Concomitant]
  18. CETIRIZINE HYDROCHLORIDE [Concomitant]
  19. MECLOFENOXATE HYDROCHLORIDE [Concomitant]

REACTIONS (1)
  - PNEUMONIA [None]
